FAERS Safety Report 6544070-3 (Version None)
Quarter: 2010Q1

REPORT INFORMATION
  Report Type: 
  Country: None (occurrence: None)
  Receive Date: 20100119
  Receipt Date: 20100119
  Transmission Date: 20100710
  Serious: Yes (Other)
  Sender: FDA-Public Use
  Company Number: None

PATIENT
  Age: 56 Year
  Sex: Female
  Weight: 68.0396 kg

DRUGS (1)
  1. AMBIEN CR [Suspect]
     Indication: INSOMNIA
     Dosage: ONE TABLET AT BEDTIME ONCE A DAY PO
     Route: 048
     Dates: start: 20090501, end: 20100110

REACTIONS (6)
  - AMNESIA [None]
  - CONTUSION [None]
  - EATING DISORDER [None]
  - FALL [None]
  - HALLUCINATION [None]
  - SOMNAMBULISM [None]
